FAERS Safety Report 17940978 (Version 11)
Quarter: 2022Q2

REPORT INFORMATION
  Report Type: Report from Study
  Country: ES (occurrence: ES)
  Receive Date: 20200624
  Receipt Date: 20220513
  Transmission Date: 20220721
  Serious: Yes (Hospitalization, Other)
  Sender: FDA-Public Use
  Company Number: ES-VERTEX PHARMACEUTICALS-2020-012149

PATIENT
  Age: 39 Year
  Sex: Male
  Weight: 68 kg

DRUGS (8)
  1. ELEXACAFTOR\IVACAFTOR\TEZACAFTOR [Suspect]
     Active Substance: ELEXACAFTOR\IVACAFTOR\TEZACAFTOR
     Indication: Cystic fibrosis
     Dosage: HALF DOSE
     Route: 048
     Dates: start: 20200518, end: 20200518
  2. ELEXACAFTOR\IVACAFTOR\TEZACAFTOR [Suspect]
     Active Substance: ELEXACAFTOR\IVACAFTOR\TEZACAFTOR
     Dosage: 2 TABLETS WITH BREAKFAST
     Route: 048
     Dates: start: 20200519, end: 20200527
  3. KALYDECO [Suspect]
     Active Substance: IVACAFTOR
     Indication: Cystic fibrosis
     Dosage: HALF DOSE
     Route: 048
     Dates: start: 20200518, end: 20200518
  4. KALYDECO [Suspect]
     Active Substance: IVACAFTOR
     Dosage: 1 TABLET WITH DINNER
     Route: 048
     Dates: start: 20200519, end: 20200527
  5. PIPERACILLIN SODIUM\TAZOBACTAM SODIUM [Suspect]
     Active Substance: PIPERACILLIN SODIUM\TAZOBACTAM SODIUM
     Indication: Respiratory tract infection
     Dosage: 4 GRAM, EVERY 8 HOURS DOSIS :4 GRAMO
     Route: 065
     Dates: start: 20200507, end: 20200527
  6. METAMIZOLE MAGNESIUM [Suspect]
     Active Substance: METAMIZOLE MAGNESIUM
     Indication: Gastrointestinal disorder
     Dosage: 2 GRAM AMPOULE
     Route: 048
     Dates: start: 20200526, end: 20200527
  7. METAMIZOLE MAGNESIUM [Suspect]
     Active Substance: METAMIZOLE MAGNESIUM
     Indication: Pyrexia
  8. METAMIZOLE MAGNESIUM [Suspect]
     Active Substance: METAMIZOLE MAGNESIUM
     Indication: Abdominal pain

REACTIONS (9)
  - Toxic epidermal necrolysis [Recovering/Resolving]
  - Neutropenia [Recovered/Resolved]
  - Thrombocytopenia [Recovering/Resolving]
  - Hypotension [Unknown]
  - Acute respiratory failure [Recovering/Resolving]
  - Generalised oedema [Recovering/Resolving]
  - Lymphopenia [Recovering/Resolving]
  - Pneumonia [Recovering/Resolving]
  - Hyperbilirubinaemia [Recovering/Resolving]

NARRATIVE: CASE EVENT DATE: 20200101
